FAERS Safety Report 16792020 (Version 1)
Quarter: 2019Q3

REPORT INFORMATION
  Report Type: Spontaneous
  Country: NL (occurrence: NL)
  Receive Date: 20190910
  Receipt Date: 20190910
  Transmission Date: 20191005
  Serious: Yes (Hospitalization)
  Sender: FDA-Public Use
  Company Number: NL-SA-2019SA246381

PATIENT
  Age: 68 Year
  Sex: Female
  Weight: 77 kg

DRUGS (11)
  1. METOCLOPRAMID [METOCLOPRAMIDE] [Concomitant]
     Active Substance: METOCLOPRAMIDE
     Dosage: 10 MG, TID,  USE 10 MG RECTALLY IF NECESSARY 3 TIMES A DAY NAUSEA
     Route: 054
  2. OXALIPLATIN. [Suspect]
     Active Substance: OXALIPLATIN
     Dosage: 1 DF, Q3H
     Route: 065
     Dates: start: 20190725, end: 20190725
  3. SIMVASTATINE [Concomitant]
     Active Substance: SIMVASTATIN
     Dosage: UNK UNK, UNK
     Route: 065
  4. MAGNESIUMHYDROXIDE [Concomitant]
     Dosage: 724 MG, TID, USE 724 MG ORALLY 3 TIMES A DAY IF NECESSARY IN REFLUX
     Route: 048
  5. METOCLOPRAMIDE. [Concomitant]
     Active Substance: METOCLOPRAMIDE
     Dosage: 10 MG, TID, USE 10 MG ORALLY 3 TIMES A DAY IN CASE OF NAUSEA
     Route: 048
  6. SIMVASTATINE [Concomitant]
     Active Substance: SIMVASTATIN
     Dosage: 40 MG, QD, USE 40 MG ORALLY ONCE A DAY
     Route: 048
  7. CAPECITABINE. [Concomitant]
     Active Substance: CAPECITABINE
     Dosage: 1800 MG, BID, 1800 MG ORALLY TWICE A DAY
     Route: 048
  8. OXALIPLATIN. [Suspect]
     Active Substance: OXALIPLATIN
     Indication: OESOPHAGEAL SQUAMOUS CELL CARCINOMA METASTATIC
     Dosage: 1 DF, Q3W, 130MG / M2 1X PER 3 WEEKS IN COMBINATION WITH CAPECITABINE
     Route: 065
     Dates: start: 20190702, end: 20190702
  9. OMEPRAZOL [OMEPRAZOLE] [Concomitant]
     Active Substance: OMEPRAZOLE
     Dosage: 20 MG, QD, USE 20 MG ORALLY ONCE A DAY
     Route: 048
  10. BISOPROLOL [Concomitant]
     Active Substance: BISOPROLOL
     Dosage: 10 MG, QD, 10 MG ORALLY 1 X PER DAY
     Route: 048
  11. HYDROCHLOORTHIAZIDE [Concomitant]
     Active Substance: HYDROCHLOROTHIAZIDE
     Dosage: UNK UNK, UNK
     Route: 065

REACTIONS (6)
  - Oxygen saturation decreased [Recovered/Resolved]
  - Eyelid ptosis [Recovered/Resolved]
  - Muscular weakness [Recovered/Resolved]
  - Stridor [Recovered/Resolved]
  - Presyncope [Recovered/Resolved]
  - Laryngospasm [Recovered/Resolved]

NARRATIVE: CASE EVENT DATE: 20190725
